FAERS Safety Report 9547561 (Version 1)
Quarter: 2013Q3

REPORT INFORMATION
  Report Type: Spontaneous
  Country: US (occurrence: None)
  Receive Date: 20130702
  Receipt Date: 20130702
  Transmission Date: 20140515
  Serious: No
  Sender: FDA-Public Use
  Company Number: 411658

PATIENT
  Age: 72 Year
  Sex: Female
  Weight: 74.1 kg

DRUGS (1)
  1. PACLITAXEL ( PACLITAXEL) [Suspect]
     Indication: PRODUCT USED FOR UNKNOWN INDICATION
     Route: 042
     Dates: start: 20091019, end: 20091019

REACTIONS (2)
  - Erythema [None]
  - Dyspnoea [None]
